FAERS Safety Report 6981254-4 (Version None)
Quarter: 2010Q3

REPORT INFORMATION
  Report Type: 
  Country: None (occurrence: None)
  Receive Date: 20100827
  Receipt Date: 20100402
  Transmission Date: 20110219
  Serious: Yes (Hospitalization, Other)
  Sender: FDA-Public Use
  Company Number: 2010SCPR000491

PATIENT
  Age: 87 Year
  Sex: Female

DRUGS (16)
  1. MEGACE ES [Suspect]
     Indication: APPETITE DISORDER
     Dosage: 5 ML, QD, ORAL
     Route: 048
     Dates: start: 20100203, end: 20100326
  2. LOPRESSOR [Concomitant]
  3. ATARAX [Concomitant]
  4. TYLENOL /00020001/ (PARACETAMOL) [Concomitant]
  5. NORCO [Concomitant]
  6. ARICEPT /01318901/ (DONEPEZIL) [Concomitant]
  7. XANAX [Concomitant]
  8. NAMENDA [Concomitant]
  9. TRAZODONE HCL [Concomitant]
  10. OS-CAL /00108001/ (CALCIUM CARBONATE) [Concomitant]
  11. REMERON [Concomitant]
  12. FERROUS SULFATE TAB [Concomitant]
  13. CLARITIN /00917501/ (LORATADINE) [Concomitant]
  14. ZYPREXA [Concomitant]
  15. VITAMIN C /00008001/ (ASCORBIC ACID) [Concomitant]
  16. MULTIVITAMIN /00831701/ (VITAMINS NOS) [Concomitant]

REACTIONS (1)
  - DEEP VEIN THROMBOSIS [None]
